FAERS Safety Report 6894869-9 (Version None)
Quarter: 2010Q3

REPORT INFORMATION
  Report Type: 
  Country: None (occurrence: None)
  Receive Date: 20100802
  Receipt Date: 20100730
  Transmission Date: 20110219
  Serious: Yes (Other)
  Sender: FDA-Public Use
  Company Number: BE-ABBOTT-10P-013-0635567-00

PATIENT
  Sex: Male

DRUGS (6)
  1. HUMIRA [Suspect]
     Indication: RHEUMATOID ARTHRITIS
     Dates: start: 20090129
  2. LEDERTREXATE [Concomitant]
     Indication: PRODUCT USED FOR UNKNOWN INDICATION
  3. FOLIC ACID [Concomitant]
     Indication: PRODUCT USED FOR UNKNOWN INDICATION
  4. ZANIDIP [Concomitant]
     Indication: PRODUCT USED FOR UNKNOWN INDICATION
  5. LODOZ [Concomitant]
     Indication: PRODUCT USED FOR UNKNOWN INDICATION
     Dosage: 10/6.25MG- 1 TABLET DAILY
  6. ZOCOR [Concomitant]
     Indication: PRODUCT USED FOR UNKNOWN INDICATION

REACTIONS (20)
  - ANGIOPATHY [None]
  - BLOOD CREATININE INCREASED [None]
  - CARDIAC MURMUR [None]
  - ELECTROCARDIOGRAM Q WAVE ABNORMAL [None]
  - FEMORAL ARTERIAL STENOSIS [None]
  - FEMORAL ARTERY OCCLUSION [None]
  - ILL-DEFINED DISORDER [None]
  - INFECTION [None]
  - INTERMITTENT CLAUDICATION [None]
  - INTERSTITIAL LUNG DISEASE [None]
  - KYPHOSIS [None]
  - MICROCYTIC ANAEMIA [None]
  - PERIPHERAL ARTERIAL OCCLUSIVE DISEASE [None]
  - PULSE ABSENT [None]
  - PULSE PRESSURE DECREASED [None]
  - RHONCHI [None]
  - SPINAL DISORDER [None]
  - VASCULAR OCCLUSION [None]
  - VASCULAR OPERATION [None]
  - VENTRICULAR EXTRASYSTOLES [None]
